FAERS Safety Report 5043106-9 (Version None)
Quarter: 2006Q2

REPORT INFORMATION
  Report Type: 
  Country: None (occurrence: None)
  Receive Date: 20060627
  Receipt Date: 20060612
  Transmission Date: 20061013
  Serious: Yes (Other)
  Sender: FDA-Public Use
  Company Number: 2006075678

PATIENT
  Sex: Male

DRUGS (1)
  1. LINEZOLID [Suspect]

REACTIONS (1)
  - BONE MARROW DISORDER [None]
